FAERS Safety Report 13071333 (Version 1)
Quarter: 2016Q4

REPORT INFORMATION
  Report Type: Report from Study
  Country: IL (occurrence: IL)
  Receive Date: 20161229
  Receipt Date: 20161229
  Transmission Date: 20170207
  Serious: Yes (Hospitalization)
  Sender: FDA-Public Use
  Company Number: PHHY2016IL170597

PATIENT
  Age: 56 Year
  Sex: Female

DRUGS (1)
  1. GILENYA [Suspect]
     Active Substance: FINGOLIMOD HYDROCHLORIDE
     Indication: MULTIPLE SCLEROSIS
     Dosage: 0.5 MG, QD
     Route: 048
     Dates: start: 20120417, end: 20161208

REACTIONS (6)
  - Herpes zoster pharyngitis [Unknown]
  - Ear pain [Recovering/Resolving]
  - Diplopia [Not Recovered/Not Resolved]
  - Oropharyngeal pain [Not Recovered/Not Resolved]
  - Deafness unilateral [Not Recovered/Not Resolved]
  - VIIth nerve injury [Unknown]

NARRATIVE: CASE EVENT DATE: 20161208
